FAERS Safety Report 8378888-1 (Version None)
Quarter: 2012Q2

REPORT INFORMATION
  Report Type: 
  Country: None (occurrence: None)
  Receive Date: 20120522
  Receipt Date: 20120522
  Transmission Date: 20120825
  Serious: Yes (Life-Threatening, Hospitalization)
  Sender: FDA-Public Use
  Company Number: None

PATIENT
  Sex: Male
  Weight: 89.0865 kg

DRUGS (2)
  1. BOCEPREVIR 200MG CAPSULE MERCK [Suspect]
     Indication: HEPATITIS C
     Dosage: 200MG CAPSULE MERCK
     Route: 048
     Dates: start: 20120427, end: 20120511
  2. LISINOPRIL [Suspect]
     Indication: HYPERTENSION
     Dosage: 1 TABLET EVERY MORNING PO
     Route: 048
     Dates: start: 20030929, end: 20120511

REACTIONS (1)
  - ANGIOEDEMA [None]
